FAERS Safety Report 11253135 (Version 6)
Quarter: 2016Q1

REPORT INFORMATION
  Report Type: Report from Study
  Country: US (occurrence: US)
  Receive Date: 20150709
  Receipt Date: 20160331
  Transmission Date: 20160525
  Serious: Yes (Other)
  Sender: FDA-Public Use
  Company Number: US-AMGEN-USASP2015067032

PATIENT
  Age: 68 Year
  Sex: Female
  Weight: 82.99 kg

DRUGS (2)
  1. ENBREL [Suspect]
     Active Substance: ETANERCEPT
     Indication: RHEUMATOID ARTHRITIS
     Dosage: 50 MG, QWK
     Route: 058
     Dates: start: 20070925, end: 20150609
  2. ENBREL [Suspect]
     Active Substance: ETANERCEPT
     Indication: PSORIASIS
     Dosage: 50 MG, QWK
     Route: 058
     Dates: start: 20151201

REACTIONS (16)
  - Albumin globulin ratio decreased [Unknown]
  - Blood albumin decreased [Unknown]
  - Alanine aminotransferase increased [Unknown]
  - Chest pain [Recovered/Resolved]
  - Mean cell haemoglobin concentration decreased [Unknown]
  - Haematocrit decreased [Recovered/Resolved]
  - Glomerular filtration rate decreased [Unknown]
  - Lymphocyte count decreased [Unknown]
  - Blood urea increased [Unknown]
  - Haemoglobin decreased [Recovered/Resolved]
  - Blood glucose increased [Unknown]
  - Eosinophil count decreased [Unknown]
  - Blood potassium decreased [Unknown]
  - Dyspnoea [Recovered/Resolved]
  - Blood calcium decreased [Unknown]
  - Blood alkaline phosphatase increased [Unknown]

NARRATIVE: CASE EVENT DATE: 20140422
